FAERS Safety Report 9202864 (Version 2)
Quarter: 2013Q4

REPORT INFORMATION
  Report Type: Spontaneous
  Country: BR (occurrence: BR)
  Receive Date: 20130402
  Receipt Date: 20131018
  Transmission Date: 20140711
  Serious: Yes (Other)
  Sender: FDA-Public Use
  Company Number: BR-AMGEN-BRASP2013021524

PATIENT
  Age: 58 Year
  Sex: Female
  Weight: 78 kg

DRUGS (8)
  1. ENBREL [Suspect]
     Indication: RHEUMATOID ARTHRITIS
     Dosage: 50 MG, 2 AMPOULES OF 25MG ONCE A WEEK
     Route: 058
     Dates: start: 201303, end: 20130813
  2. ARAVA [Concomitant]
     Dosage: UNK
  3. REUQUINOL [Concomitant]
     Dosage: UNK
  4. PREDNISONE [Concomitant]
     Dosage: UNK
  5. CELEBRA [Concomitant]
     Dosage: UNK
  6. ACETAMINOPHEN [Concomitant]
     Indication: PAIN
     Dosage: UNK
  7. CALCIUM SANDOZ                     /00060701/ [Concomitant]
     Dosage: UNK
  8. REMICADE [Concomitant]
     Dosage: UNK

REACTIONS (9)
  - Pain in extremity [Unknown]
  - Gait disturbance [Not Recovered/Not Resolved]
  - Malaise [Recovered/Resolved]
  - Dizziness [Recovered/Resolved]
  - Somnolence [Recovered/Resolved]
  - Fatigue [Unknown]
  - Diarrhoea [Unknown]
  - Arthralgia [Unknown]
  - Musculoskeletal pain [Unknown]
